FAERS Safety Report 4971684-4 (Version None)
Quarter: 2006Q2

REPORT INFORMATION
  Report Type: 
  Country: None (occurrence: None)
  Receive Date: 20060407
  Receipt Date: 20060322
  Transmission Date: 20061013
  Serious: Yes (Hospitalization)
  Sender: FDA-Public Use
  Company Number: 223227

PATIENT
  Age: 78 Year
  Sex: Female
  Weight: 45.3 kg

DRUGS (13)
  1. AVASTIN [Suspect]
     Indication: COLORECTAL CANCER METASTATIC
     Dosage: 5 MG/KG, Q2W; INTRAVENOUS
     Route: 042
     Dates: start: 20060304
  2. FLUOROURACIL [Suspect]
     Indication: COLORECTAL CANCER METASTATIC
     Dosage: 3504
     Dates: start: 20060304
  3. LEUCOVORIN CALCIUM [Suspect]
     Indication: COLORECTAL CANCER METASTATIC
     Dosage: 584
     Dates: start: 20060304
  4. IRINOTECAN HCL [Suspect]
     Indication: COLORECTAL CANCER METASTATIC
     Dosage: 263 MG, INTRAVENOUS
     Route: 042
     Dates: start: 20060304
  5. COMPAZINE [Concomitant]
  6. DARVON [Concomitant]
  7. ATENOLOL [Concomitant]
  8. PLETAL (CILOSTAZOL) [Concomitant]
  9. PLAVIX [Concomitant]
  10. RESTASIS (CYCLOSPORINE) [Concomitant]
  11. VYTORIN (EXETIMIBE, SIMVASTATIN) [Concomitant]
  12. AMBIEN [Concomitant]
  13. CIPROFLOXACIN HCL [Concomitant]

REACTIONS (13)
  - ASTHENIA [None]
  - BLOOD GLUCOSE DECREASED [None]
  - BLOOD PRESSURE DIASTOLIC DECREASED [None]
  - BLOOD SODIUM DECREASED [None]
  - DEHYDRATION [None]
  - FATIGUE [None]
  - HAEMATOCRIT DECREASED [None]
  - HAEMOGLOBIN DECREASED [None]
  - INFECTION [None]
  - NEUTROPHIL COUNT DECREASED [None]
  - PNEUMONIA [None]
  - PYREXIA [None]
  - WHITE BLOOD CELL COUNT DECREASED [None]
